FAERS Safety Report 6171470-6 (Version None)
Quarter: 2009Q2

REPORT INFORMATION
  Report Type: 
  Country: None (occurrence: None)
  Receive Date: 20090424
  Receipt Date: 20080715
  Transmission Date: 20091009
  Serious: Yes (Other)
  Sender: FDA-Public Use
  Company Number: WAES 0807USA03419

PATIENT
  Age: 10 Year
  Sex: Male
  Weight: 72.5755 kg

DRUGS (7)
  1. SINGULAIR [Suspect]
     Indication: ASTHMA
     Dosage: 10 MG/DAILY/PO
     Route: 048
     Dates: start: 20050901, end: 20080401
  2. SINGULAIR [Suspect]
     Indication: HYPERSENSITIVITY
     Dosage: 10 MG/DAILY/PO
     Route: 048
     Dates: start: 20050901, end: 20080401
  3. SINGULAIR [Suspect]
     Indication: ASTHMA
     Dosage: 10 MG/DAILY/PO
     Route: 048
     Dates: start: 20080401, end: 20080501
  4. SINGULAIR [Suspect]
     Indication: HYPERSENSITIVITY
     Dosage: 10 MG/DAILY/PO
     Route: 048
     Dates: start: 20080401, end: 20080501
  5. TEGRETOL [Concomitant]
  6. CLONIDINE [Concomitant]
  7. LITHIUM CARBONATE [Concomitant]

REACTIONS (2)
  - AGGRESSION [None]
  - OVERDOSE [None]
